FAERS Safety Report 4876222-2 (Version None)
Quarter: 2005Q4

REPORT INFORMATION
  Report Type: 
  Country: None (occurrence: None)
  Receive Date: 20051207
  Receipt Date: 20050512
  Transmission Date: 20060501
  Serious: Yes (Hospitalization)
  Sender: FDA-Public Use
  Company Number: 404500

PATIENT
  Age: 79 Year
  Sex: Male

DRUGS (8)
  1. VALIUM [Suspect]
     Indication: SEDATION
     Dosage: ORAL
     Route: 048
     Dates: start: 20050413, end: 20050413
  2. VERSED [Suspect]
     Indication: SEDATION
     Dosage: ORAL
     Route: 048
     Dates: start: 20050413, end: 20050413
  3. LANOXIN [Concomitant]
  4. ASPIRIN [Concomitant]
  5. PSYLLIUM (PSYLLIUM HUSK) [Concomitant]
  6. NORPACE [Concomitant]
  7. BENADRYL (*ACRIVASTINE/*AMMONIUM CHLORIDE/*DIPHENHYDRAMINE HYDROCHLORI [Concomitant]
  8. FENTANYL [Concomitant]

REACTIONS (1)
  - CONFUSIONAL STATE [None]
